FAERS Safety Report 12146024 (Version 1)
Quarter: 2016Q1

REPORT INFORMATION
  Report Type: Spontaneous
  Country: US (occurrence: None)
  Receive Date: 20160303
  Receipt Date: 20160303
  Transmission Date: 20160526
  Serious: No
  Sender: FDA-Public Use
  Company Number: None

PATIENT
  Age: 65 Year
  Sex: Male

DRUGS (1)
  1. SENSIPAR [Suspect]
     Active Substance: CINACALCET HYDROCHLORIDE
     Indication: HYPERPARATHYROIDISM
     Dosage: 1 TAB DAILY AT DINNER BY MOUTH
     Route: 048
     Dates: start: 20151130

REACTIONS (4)
  - Headache [None]
  - Nausea [None]
  - Vomiting [None]
  - Influenza like illness [None]
